FAERS Safety Report 7007257-1 (Version None)
Quarter: 2010Q3

REPORT INFORMATION
  Report Type: 
  Country: None (occurrence: None)
  Receive Date: 20100922
  Receipt Date: 20100915
  Transmission Date: 20110219
  Serious: Yes (Other)
  Sender: FDA-Public Use
  Company Number: GB-GENZYME-FABR-1001510

PATIENT
  Sex: Male

DRUGS (5)
  1. FABRAZYME [Suspect]
     Indication: FABRY'S DISEASE
     Dosage: 0.5 MG/KG, Q2W
     Route: 042
     Dates: start: 20100701
  2. FABRAZYME [Suspect]
     Dosage: 1 MG/KG, Q2W
     Route: 042
     Dates: start: 20070614, end: 20100701
  3. PREDNISOLONE [Concomitant]
     Indication: PREMEDICATION
  4. PIRITON [Concomitant]
     Indication: PREMEDICATION
  5. IRBESARTAN [Concomitant]
     Indication: PRODUCT USED FOR UNKNOWN INDICATION
     Dosage: 150 MG, QD
     Dates: start: 20100101

REACTIONS (2)
  - PROTEINURIA [None]
  - RENAL IMPAIRMENT [None]
